FAERS Safety Report 11400947 (Version 1)
Quarter: 2015Q3

REPORT INFORMATION
  Report Type: Spontaneous
  Country: US (occurrence: US)
  Receive Date: 20150820
  Receipt Date: 20150820
  Transmission Date: 20151125
  Serious: No
  Sender: FDA-Public Use
  Company Number: US-JNJFOC-20150814294

PATIENT
  Sex: Male

DRUGS (12)
  1. DURAGESIC [Suspect]
     Active Substance: FENTANYL
     Indication: ARTHRITIS
     Route: 062
  2. GENERIC FENTANYL PATCH [Suspect]
     Active Substance: FENTANYL
     Indication: ARTHRITIS
     Route: 062
  3. GENERIC FENTANYL PATCH [Suspect]
     Active Substance: FENTANYL
     Indication: FIBROMYALGIA
     Route: 062
  4. DURAGESIC [Suspect]
     Active Substance: FENTANYL
     Indication: BACK DISORDER
     Route: 062
  5. DURAGESIC [Suspect]
     Active Substance: FENTANYL
     Indication: INTERVERTEBRAL DISC DISORDER
     Route: 062
  6. GENERIC FENTANYL PATCH [Suspect]
     Active Substance: FENTANYL
     Indication: BACK DISORDER
     Route: 062
  7. DURAGESIC [Suspect]
     Active Substance: FENTANYL
     Indication: SCIATICA
     Route: 062
  8. DURAGESIC [Suspect]
     Active Substance: FENTANYL
     Indication: FIBROMYALGIA
     Route: 062
  9. GENERIC FENTANYL PATCH [Suspect]
     Active Substance: FENTANYL
     Indication: INTERVERTEBRAL DISC DISORDER
     Route: 062
  10. GENERIC FENTANYL PATCH [Suspect]
     Active Substance: FENTANYL
     Indication: PAIN
     Route: 062
  11. DURAGESIC [Suspect]
     Active Substance: FENTANYL
     Indication: PAIN
     Route: 062
  12. GENERIC FENTANYL PATCH [Suspect]
     Active Substance: FENTANYL
     Indication: SCIATICA
     Route: 062

REACTIONS (3)
  - Drug dose omission [Recovered/Resolved]
  - Product quality issue [Recovered/Resolved]
  - Product adhesion issue [Recovered/Resolved]
